FAERS Safety Report 10172534 (Version 4)
Quarter: 2014Q2

REPORT INFORMATION
  Report Type: Spontaneous
  Country: US (occurrence: US)
  Receive Date: 20140515
  Receipt Date: 20140611
  Transmission Date: 20141212
  Serious: Yes (Life-Threatening, Hospitalization, Other)
  Sender: FDA-Public Use
  Company Number: US-MERCK-1405USA006895

PATIENT
  Sex: Male
  Weight: 102.4 kg

DRUGS (4)
  1. JANUVIA [Suspect]
     Indication: TYPE 2 DIABETES MELLITUS
     Dosage: 100 MG, QD
     Route: 048
     Dates: start: 20070915, end: 20080723
  2. JANUVIA [Suspect]
     Dosage: 100 MG, QD
     Route: 048
     Dates: start: 20090213, end: 20111219
  3. ZETIA [Concomitant]
     Indication: BLOOD CHOLESTEROL INCREASED
     Dosage: 10 MG, HS
     Dates: start: 2004
  4. CRESTOR [Concomitant]
     Indication: BLOOD CHOLESTEROL INCREASED
     Dosage: 40 MG, QD
     Dates: start: 2004

REACTIONS (35)
  - Pancreatic carcinoma recurrent [Unknown]
  - Pancreatectomy [Unknown]
  - Splenectomy [Unknown]
  - Pancreatitis chronic [Unknown]
  - Myocardial infarction [Unknown]
  - Metastases to lymph nodes [Unknown]
  - Rotator cuff repair [Unknown]
  - Carotid endarterectomy [Unknown]
  - Pneumonia [Unknown]
  - Central venous catheterisation [Unknown]
  - Pancreatic mass [Unknown]
  - Coronary artery disease [Unknown]
  - Coronary artery disease [Unknown]
  - Radiotherapy to pancreas [Unknown]
  - Gastrointestinal mucosal disorder [Unknown]
  - Urinary incontinence [Unknown]
  - Nerve compression [Unknown]
  - Inguinal hernia [Unknown]
  - Flank pain [Unknown]
  - Renal cyst [Unknown]
  - Aortic aneurysm [Unknown]
  - Diverticulum [Unknown]
  - Pleural effusion [Unknown]
  - Depression [Unknown]
  - Anxiety [Unknown]
  - Chronic obstructive pulmonary disease [Not Recovered/Not Resolved]
  - Osteoarthritis [Unknown]
  - Bone lesion excision [Unknown]
  - Cyst removal [Unknown]
  - Prostatomegaly [Unknown]
  - Inappropriate affect [Unknown]
  - Central venous catheterisation [Unknown]
  - Dizziness [Unknown]
  - Abdominal discomfort [Unknown]
  - Back pain [Unknown]
